FAERS Safety Report 21625507 (Version 1)
Quarter: 2022Q4

REPORT INFORMATION
  Report Type: Report from Study
  Country: US (occurrence: US)
  Receive Date: 20221122
  Receipt Date: 20221122
  Transmission Date: 20230113
  Serious: No
  Sender: FDA-Public Use
  Company Number: US-ABBVIE-4204254

PATIENT
  Sex: Female

DRUGS (20)
  1. VENCLEXTA [Suspect]
     Active Substance: VENETOCLAX
     Indication: Acute myeloid leukaemia
     Route: 048
  2. Ondansetron Oral Tablet Disintegrat 8 mg [Concomitant]
     Indication: Product used for unknown indication
     Route: 048
  3. rOPINIRole HCl ER Oral Tablet Exten 2 mg [Concomitant]
     Indication: Product used for unknown indication
     Route: 048
  4. hydroCHLOROthiazide Oral Tablet 25 mg [Concomitant]
     Indication: Product used for unknown indication
     Route: 048
  5. oxyCODONE HCl Oral Tablet 15 MG [Concomitant]
     Indication: Product used for unknown indication
     Route: 048
  6. ISOSORBIDE MONONITRATE [Concomitant]
     Active Substance: ISOSORBIDE MONONITRATE
     Indication: Product used for unknown indication
  7. Sertraline HCl Oral Tablet 100 MG [Concomitant]
     Indication: Product used for unknown indication
     Route: 048
  8. Spironolactone Oral Tablet 100 MG [Concomitant]
     Indication: Product used for unknown indication
     Route: 048
  9. Eliquis Oral Tablet 5 MG [Concomitant]
     Indication: Product used for unknown indication
     Route: 048
  10. Furosemide Oral Tablet 20 MG [Concomitant]
     Indication: Product used for unknown indication
     Route: 048
  11. Zolpidem Tartrate Oral Tablet 10 MG [Concomitant]
     Indication: Product used for unknown indication
     Route: 048
  12. lamoTRIgine Oral Tablet 100 MG [Concomitant]
     Indication: Product used for unknown indication
     Route: 048
  13. Gabapentin Oral Capsule 300 MG [Concomitant]
     Indication: Product used for unknown indication
     Route: 048
  14. Allopurinol Oral Tablet 300 MG [Concomitant]
     Indication: Product used for unknown indication
     Route: 048
  15. DIPHENHYDRAMINE HYDROCHLORIDE\LIDOCAINE HYDROCHLORIDE\NYSTATIN [Concomitant]
     Active Substance: DIPHENHYDRAMINE HYDROCHLORIDE\LIDOCAINE HYDROCHLORIDE\NYSTATIN
     Indication: Product used for unknown indication
  16. Zinc Oral Tablet 50 MG [Concomitant]
     Indication: Product used for unknown indication
     Route: 048
  17. Famotidine Oral Tablet 20 MG [Concomitant]
     Indication: Product used for unknown indication
     Route: 048
  18. FILGRASTIM-SNDZ [Concomitant]
     Active Substance: FILGRASTIM-SNDZ
     Indication: Product used for unknown indication
  19. Metoprolol Succinate ER Oral Tablet 100 mg [Concomitant]
     Indication: Product used for unknown indication
     Route: 048
  20. Acyclovir Oral Tablet 400 MG [Concomitant]
     Indication: Product used for unknown indication
     Route: 048

REACTIONS (2)
  - Fatigue [Unknown]
  - Full blood count decreased [Unknown]
